FAERS Safety Report 6257496-2 (Version None)
Quarter: 2009Q3

REPORT INFORMATION
  Report Type: 
  Country: None (occurrence: None)
  Receive Date: 20090706
  Receipt Date: 20090622
  Transmission Date: 20100115
  Serious: Yes (Other)
  Sender: FDA-Public Use
  Company Number: ES-ROCHE-641149

PATIENT
  Age: 43 Year
  Sex: Male

DRUGS (2)
  1. PEG-INTERFERON ALFA 2A (RO 25-8310) [Suspect]
     Route: 065
  2. RIBAVIRIN [Suspect]
     Route: 065

REACTIONS (10)
  - ASTHENIA [None]
  - DIARRHOEA [None]
  - FATIGUE [None]
  - HEADACHE [None]
  - MYALGIA [None]
  - NAUSEA [None]
  - PNEUMONIA BACTERIAL [None]
  - PYREXIA [None]
  - RESPIRATORY FAILURE [None]
  - TUBERCULOSIS [None]
